FAERS Safety Report 16222724 (Version 1)
Quarter: 2019Q2

REPORT INFORMATION
  Report Type: Spontaneous
  Country: FR (occurrence: FR)
  Receive Date: 20190422
  Receipt Date: 20190422
  Transmission Date: 20190711
  Serious: Yes (Hospitalization)
  Sender: FDA-Public Use
  Company Number: FR-GLAXOSMITHKLINE-FR2019067825

PATIENT
  Age: 6 Year
  Sex: Male
  Weight: 15 kg

DRUGS (4)
  1. ZOVIRAX [Suspect]
     Active Substance: ACYCLOVIR
     Indication: ORAL MUCOSAL ERUPTION
     Dosage: UNK
     Route: 048
     Dates: start: 20190316, end: 201903
  2. PROHIPPUR [Suspect]
     Active Substance: SODIUM BENZOATE
     Indication: HYPERGLYCINAEMIA
     Dosage: UNK
     Route: 048
     Dates: start: 201809, end: 20190322
  3. NORMACOL LAVEMENT [Suspect]
     Active Substance: SODIUM PHOSPHATE, DIBASIC\SODIUM PHOSPHATE, MONOBASIC
     Indication: FAECALOMA
     Dosage: UNK
     Route: 066
     Dates: start: 20190320, end: 20190320
  4. LEVETIRACETAM. [Concomitant]
     Active Substance: LEVETIRACETAM
     Indication: EPILEPSY
     Dosage: 1000 MG, QD
     Route: 048

REACTIONS (1)
  - Metabolic acidosis [Recovered/Resolved]

NARRATIVE: CASE EVENT DATE: 20190322
